FAERS Safety Report 22101078 (Version 1)
Quarter: 2023Q1

REPORT INFORMATION
  Report Type: Spontaneous
  Country: AR (occurrence: AR)
  Receive Date: 20230316
  Receipt Date: 20230316
  Transmission Date: 20230418
  Serious: Yes (Other)
  Sender: FDA-Public Use
  Company Number: AR-BIOGEN-2023BI01193721

PATIENT
  Age: 45 Year
  Sex: Female

DRUGS (3)
  1. TYSABRI [Suspect]
     Active Substance: NATALIZUMAB
     Indication: Multiple sclerosis
     Route: 050
     Dates: start: 2017
  2. LEVETIRACETAM [Concomitant]
     Active Substance: LEVETIRACETAM
     Indication: Epilepsy
     Route: 050
  3. DIAZEPAM [Concomitant]
     Active Substance: DIAZEPAM
     Indication: Premedication
     Route: 050

REACTIONS (1)
  - Seizure [Unknown]
